FAERS Safety Report 12192648 (Version 1)
Quarter: 2016Q1

REPORT INFORMATION
  Report Type: Spontaneous
  Country: JP (occurrence: JP)
  Receive Date: 20160318
  Receipt Date: 20160318
  Transmission Date: 20160526
  Serious: Yes (Other)
  Sender: FDA-Public Use
  Company Number: JP-PFIZER INC-2016162272

PATIENT
  Sex: Male

DRUGS (3)
  1. SOLANAX [Suspect]
     Active Substance: ALPRAZOLAM
     Indication: ANXIETY
     Dosage: 0.4 MG, 2X/WEEK
     Route: 048
  2. AMARYL [Concomitant]
     Active Substance: GLIMEPIRIDE
     Dosage: UNK
     Route: 048
  3. SOLANAX [Suspect]
     Active Substance: ALPRAZOLAM
     Dosage: UNK, DAILY
     Dates: start: 201603, end: 201603

REACTIONS (3)
  - Disease recurrence [Recovered/Resolved]
  - Atrial fibrillation [Recovered/Resolved]
  - Intentional product misuse [Unknown]

NARRATIVE: CASE EVENT DATE: 201603
